FAERS Safety Report 8797558 (Version 1)
Quarter: 2012Q4

REPORT INFORMATION
  Report Type: 
  Country: US (occurrence: US)
  Receive Date: 20120920
  Receipt Date: 20120920
  Transmission Date: 20130627
  Serious: No
  Sender: FDA-Public Use
  Company Number: US-PFIZER INC-2012231289

PATIENT
  Age: 55 Year
  Sex: Male
  Weight: 65.31 kg

DRUGS (8)
  1. ZOLOFT [Suspect]
     Indication: DEPRESSION
     Dosage: 100 mg, 2x/day
  2. ZOLOFT [Suspect]
     Dosage: 100 mg, 2x/day
     Dates: start: 2009
  3. KLONOPIN [Concomitant]
     Indication: DEPRESSION
     Dosage: 0.5 mg,daily
  4. WELLBUTRIN [Concomitant]
     Indication: DEPRESSION
     Dosage: 150 mg, 2x/day
  5. CYPROHEPTADINE [Concomitant]
     Indication: DEPRESSION
     Dosage: 8 mg (at bed time ),daily
     Route: 048
  6. TRAZODONE [Concomitant]
     Indication: DEPRESSION
     Dosage: 300 mg (at bed time ), daily
     Route: 048
  7. OXYCODONE [Concomitant]
     Indication: DEPRESSION
     Dosage: 150 mg,daily
  8. LITHIUM [Concomitant]
     Indication: DEPRESSION
     Dosage: 450 mg,daily

REACTIONS (1)
  - Drug ineffective [Unknown]
